FAERS Safety Report 8265527-3 (Version None)
Quarter: 2012Q2

REPORT INFORMATION
  Report Type: 
  Country: None (occurrence: None)
  Receive Date: 20120406
  Receipt Date: 20120330
  Transmission Date: 20120825
  Serious: Yes (Life-Threatening, Other)
  Sender: FDA-Public Use
  Company Number: FR-PFIZER INC-2012086260

PATIENT
  Age: 68 Year
  Sex: Male

DRUGS (19)
  1. LYRICA [Concomitant]
     Indication: DIABETIC NEUROPATHY
     Dosage: UNK
     Route: 048
     Dates: start: 20071122
  2. PARACETAMOL [Concomitant]
  3. CLARITIN [Concomitant]
  4. CALCIUM CARBONATE [Concomitant]
     Indication: RENAL FAILURE CHRONIC
  5. RENAGEL [Suspect]
     Dosage: 800 MG, 3X/DAY
     Route: 048
     Dates: start: 20101201, end: 20111125
  6. FOLIC ACID [Concomitant]
     Dosage: UNK
     Dates: start: 20100510
  7. NOVOMIX [Concomitant]
     Indication: TYPE 2 DIABETES MELLITUS
     Dosage: UNK
     Dates: start: 20110601
  8. KAYEXALATE [Concomitant]
     Indication: RENAL FAILURE CHRONIC
  9. RENAGEL [Suspect]
     Indication: HYPERPHOSPHATAEMIA
     Dosage: 800 MG, 3X/DAY
     Route: 048
     Dates: start: 20070802, end: 20101011
  10. TENORMIN [Concomitant]
     Indication: MYOCARDIAL ISCHAEMIA
  11. RENVELA [Suspect]
     Indication: HYPERPHOSPHATAEMIA
     Dosage: 800 MG, 3X/DAY
     Route: 048
     Dates: start: 20101011, end: 20101129
  12. LIDOCAINE [Concomitant]
  13. ASPIRIN [Concomitant]
     Indication: MYOCARDIAL ISCHAEMIA
     Dosage: UNK
     Dates: start: 20110101
  14. PRAVASTATIN [Concomitant]
     Indication: MYOCARDIAL ISCHAEMIA
  15. PANTOPRAZOLE SODIUM [Suspect]
     Dosage: 40 MG, DAILY
     Route: 048
     Dates: start: 20070802
  16. PLAVIX [Suspect]
     Indication: MYOCARDIAL ISCHAEMIA
     Dosage: 75 MG, UNK
     Route: 048
     Dates: start: 20050101, end: 20110101
  17. IRBESARTAN [Suspect]
     Indication: MYOCARDIAL ISCHAEMIA
     Dosage: 300GM THEN 150GM THEN 75MG
     Route: 048
     Dates: start: 20070802, end: 20111125
  18. TRAMADOL HCL [Concomitant]
  19. IRON [Concomitant]
     Indication: RENAL FAILURE CHRONIC
     Dosage: UNK
     Dates: start: 20100709, end: 20101229

REACTIONS (5)
  - TOE AMPUTATION [None]
  - KLEBSIELLA INFECTION [None]
  - VARICOSE ULCERATION [None]
  - SEPSIS [None]
  - NEUTROPENIA [None]
